FAERS Safety Report 6918558-7 (Version None)
Quarter: 2010Q3

REPORT INFORMATION
  Report Type: 
  Country: None (occurrence: None)
  Receive Date: 20100811
  Receipt Date: 20100802
  Transmission Date: 20110219
  Serious: No
  Sender: FDA-Public Use
  Company Number: US-JNJFOC-20100801370

PATIENT
  Sex: Female

DRUGS (3)
  1. HALDOL [Suspect]
     Indication: PRODUCT USED FOR UNKNOWN INDICATION
     Route: 065
  2. RISPERDAL CONSTA [Suspect]
     Indication: PRODUCT USED FOR UNKNOWN INDICATION
     Route: 030
  3. INVEGA SUSTENNA [Suspect]
     Indication: PRODUCT USED FOR UNKNOWN INDICATION
     Route: 030
     Dates: start: 20100729

REACTIONS (10)
  - ASTHENIA [None]
  - ASTHENOPIA [None]
  - DEPRESSION [None]
  - DISTURBANCE IN SEXUAL AROUSAL [None]
  - DRUG WITHDRAWAL SYNDROME [None]
  - FATIGUE [None]
  - HEADACHE [None]
  - MENORRHAGIA [None]
  - TONGUE DRY [None]
  - VULVOVAGINAL DRYNESS [None]
